FAERS Safety Report 8764668 (Version 1)
Quarter: 2012Q4

REPORT INFORMATION
  Report Type: 
  Country: BR (occurrence: BR)
  Receive Date: 20120831
  Receipt Date: 20120831
  Transmission Date: 20130627
  Serious: Yes (Other)
  Sender: FDA-Public Use
  Company Number: BR-PFIZER INC-2012209920

PATIENT
  Age: 57 Year
  Sex: Male
  Weight: 70 kg

DRUGS (3)
  1. VIAGRA [Suspect]
     Dosage: UNK
     Dates: start: 2008
  2. PRISTIQ [Concomitant]
     Dosage: UNK
  3. RETEMIC [Concomitant]
     Dosage: UNK mg, UNK

REACTIONS (1)
  - Prostate cancer [Unknown]
